FAERS Safety Report 7883252-5 (Version None)
Quarter: 2011Q4

REPORT INFORMATION
  Report Type: 
  Country: None (occurrence: None)
  Receive Date: 20111102
  Receipt Date: 20111020
  Transmission Date: 20120403
  Serious: Yes (Hospitalization, Other)
  Sender: FDA-Public Use
  Company Number: DE-RANBAXY-2011RR-49879

PATIENT
  Sex: Female
  Weight: 3.31 kg

DRUGS (2)
  1. SERTRALINE HYDROCHLORIDE [Suspect]
     Dosage: 100 MG/DAY
     Route: 064
  2. FOLSAURE [Concomitant]
     Dosage: UNK
     Route: 064

REACTIONS (4)
  - GROSS MOTOR DELAY [None]
  - CYANOSIS NEONATAL [None]
  - HAEMATOMA [None]
  - AGITATION NEONATAL [None]
